FAERS Safety Report 5415665-5 (Version None)
Quarter: 2007Q3

REPORT INFORMATION
  Report Type: 
  Country: None (occurrence: None)
  Receive Date: 20070815
  Receipt Date: 20061013
  Transmission Date: 20080115
  Serious: No
  Sender: FDA-Public Use
  Company Number: US-BRISTOL-MYERS SQUIBB COMPANY-13540497

PATIENT
  Age: 45 Year
  Sex: Female
  Weight: 54 kg

DRUGS (4)
  1. TEQUIN [Suspect]
     Indication: CHRONIC SINUSITIS
     Dates: start: 20061009
  2. EFFEXOR XR [Concomitant]
  3. AMBIEN [Concomitant]
  4. NAPROXEN [Concomitant]

REACTIONS (1)
  - ABDOMINAL PAIN UPPER [None]
